FAERS Safety Report 5020516-7 (Version None)
Quarter: 2006Q2

REPORT INFORMATION
  Report Type: 
  Country: None (occurrence: None)
  Receive Date: 20060607
  Receipt Date: 20051118
  Transmission Date: 20061013
  Serious: Yes (Hospitalization)
  Sender: FDA-Public Use
  Company Number: JP-AVENTIS-200513446JP

PATIENT
  Age: 71 Year
  Sex: Male
  Weight: 56 kg

DRUGS (10)
  1. DAONIL [Suspect]
     Indication: DIABETES MELLITUS
     Route: 048
     Dates: start: 20030306, end: 20051027
  2. CLARITHROMYCIN [Suspect]
     Route: 048
     Dates: start: 20051024, end: 20051027
  3. TAGAMET [Concomitant]
     Route: 048
     Dates: start: 19980225, end: 20051027
  4. BASEN [Concomitant]
     Route: 048
     Dates: start: 19980205, end: 20051027
  5. PURSENNID [Concomitant]
     Route: 048
     Dates: start: 19980205, end: 20051027
  6. ALOSENN [Concomitant]
     Route: 048
     Dates: start: 19980205, end: 20051027
  7. JUVELA                                  /JPN/ [Concomitant]
     Route: 048
     Dates: start: 20040506, end: 20051027
  8. DEPAS [Concomitant]
     Route: 048
     Dates: start: 20040910, end: 20051027
  9. KINEDAK [Concomitant]
     Route: 048
     Dates: start: 20041007
  10. PROCYLIN [Concomitant]
     Route: 048
     Dates: start: 20041104

REACTIONS (1)
  - HYPOGLYCAEMIA [None]
